FAERS Safety Report 9111864 (Version 1)
Quarter: 2013Q1

REPORT INFORMATION
  Report Type: Spontaneous
  Country: US (occurrence: US)
  Receive Date: 20130219
  Receipt Date: 20130219
  Transmission Date: 20140127
  Serious: No
  Sender: FDA-Public Use
  Company Number: US-BRISTOL-MYERS SQUIBB COMPANY-16689648

PATIENT
  Age: 78 Year
  Sex: Female

DRUGS (3)
  1. ORENCIA [Suspect]
     Indication: RHEUMATOID ARTHRITIS
     Dosage: LAST DATE INFU:25MAY2012,NEXT INFU:25JUN12,QUANTITY DISPENSED:1,NO.OF DEFECTIVE UNITS:1
     Route: 042
     Dates: start: 201204
  2. VICODIN [Concomitant]
  3. ALEVE [Concomitant]

REACTIONS (1)
  - Drug ineffective [Unknown]
